FAERS Safety Report 5061075-2 (Version None)
Quarter: 2006Q3

REPORT INFORMATION
  Report Type: 
  Country: None (occurrence: None)
  Receive Date: 20060719
  Receipt Date: 20060719
  Transmission Date: 20061208
  Serious: No
  Sender: FDA-Public Use
  Company Number: None

PATIENT
  Age: 71 Year
  Sex: Male
  Weight: 78.4723 kg

DRUGS (9)
  1. GLYBURIDE [Suspect]
     Dosage: 10 MG BID
     Dates: start: 20060228
  2. ASPIRIN [Concomitant]
  3. CITALOPRAM HYDROBROMIDE [Concomitant]
  4. FUROSEMIDE [Concomitant]
  5. LOSARTAN POSTASSIUM [Concomitant]
  6. METOPROLOL [Concomitant]
  7. SIMVASTATIN [Concomitant]
  8. SILDENAFIL CITRATE [Concomitant]
  9. BETAMETHASONE [Concomitant]

REACTIONS (1)
  - HYPOGLYCAEMIA [None]
